FAERS Safety Report 4690097-6 (Version None)
Quarter: 2005Q2

REPORT INFORMATION
  Report Type: 
  Country: None (occurrence: None)
  Receive Date: 20050613
  Receipt Date: 20050607
  Transmission Date: 20051028
  Serious: Yes (Hospitalization, Other)
  Sender: FDA-Public Use
  Company Number: DEWYE591818APR05

PATIENT
  Age: 41 Year
  Sex: Female

DRUGS (2)
  1. RAPAMUNE [Suspect]
     Indication: PROPHYLAXIS AGAINST TRANSPLANT REJECTION
     Dosage: 3 MG PER DAY ORAL
     Route: 048
     Dates: start: 20040603, end: 20050414
  2. TACROLIMUS (TACROLIMUS, , 0) [Suspect]
     Indication: PROPHYLAXIS AGAINST TRANSPLANT REJECTION
     Dosage: 6 MG PER DAY ORAL
     Route: 048
     Dates: start: 20040603

REACTIONS (6)
  - ASCITES [None]
  - DIARRHOEA [None]
  - PLEURAL EFFUSION [None]
  - PNEUMONIA [None]
  - RENAL FAILURE ACUTE [None]
  - TRANSPLANT FAILURE [None]
